FAERS Safety Report 7684931-5 (Version None)
Quarter: 2011Q3

REPORT INFORMATION
  Report Type: 
  Country: None (occurrence: None)
  Receive Date: 20110816
  Receipt Date: 20110803
  Transmission Date: 20111222
  Serious: Yes (Hospitalization)
  Sender: FDA-Public Use
  Company Number: PL-UCBSA-028473

PATIENT
  Sex: Female

DRUGS (1)
  1. CIMZIA [Suspect]
     Indication: RHEUMATOID ARTHRITIS
     Dosage: TEMPORARILY DISCONTINUED ON 23-FEB-2011 AND RESTARTED ON 09-MAR-2011
     Route: 058

REACTIONS (1)
  - SUBCUTANEOUS ABSCESS [None]
